FAERS Safety Report 11277982 (Version 1)
Quarter: 2015Q3

REPORT INFORMATION
  Report Type: Spontaneous
  Country: US (occurrence: US)
  Receive Date: 20150717
  Receipt Date: 20150717
  Transmission Date: 20151125
  Serious: Yes (Other)
  Sender: FDA-Public Use
  Company Number: US-AMGEN-USASP2015070266

PATIENT
  Age: 67 Year
  Sex: Female

DRUGS (5)
  1. EVEROLIMUS [Concomitant]
     Active Substance: EVEROLIMUS
  2. XGEVA [Suspect]
     Active Substance: DENOSUMAB
     Indication: PRODUCT USED FOR UNKNOWN INDICATION
     Dosage: UNK
     Route: 065
     Dates: start: 201401
  3. XELODA [Concomitant]
     Active Substance: CAPECITABINE
     Dosage: UNK
     Dates: start: 20140514, end: 201410
  4. EXEMESTANE. [Concomitant]
     Active Substance: EXEMESTANE
     Dosage: UNK
     Dates: start: 20141120
  5. TAMOXIFEN [Concomitant]
     Active Substance: TAMOXIFEN
     Dosage: UNK
     Dates: start: 20140102, end: 20140122

REACTIONS (4)
  - Fatigue [Unknown]
  - Mouth ulceration [Unknown]
  - Malignant neoplasm progression [Unknown]
  - Bone pain [Unknown]
